FAERS Safety Report 5605806-9 (Version None)
Quarter: 2008Q1

REPORT INFORMATION
  Report Type: 
  Country: None (occurrence: None)
  Receive Date: 20080129
  Receipt Date: 20080122
  Transmission Date: 20080703
  Serious: Yes (Death)
  Sender: FDA-Public Use
  Company Number: JP-JNJFOC-20071105506

PATIENT
  Age: 62 Year
  Sex: Male
  Weight: 71 kg

DRUGS (10)
  1. RISPERDAL [Suspect]
     Route: 048
  2. RISPERDAL [Suspect]
     Indication: SCHIZOPHRENIA
     Route: 048
  3. MAGNESIUM OXIDE [Concomitant]
     Route: 048
  4. MAGNESIUM OXIDE [Concomitant]
     Indication: PROPHYLAXIS
     Route: 048
  5. NITRAZEPAM [Concomitant]
     Route: 048
  6. TRIAZOLAM [Concomitant]
     Indication: SCHIZOPHRENIA
  7. HALOPERIDOL [Concomitant]
     Route: 030
  8. LOSARTAN POTASSIUM [Concomitant]
     Indication: HYPERTENSION
  9. PANTETHINE [Concomitant]
  10. QUETIAPINE [Concomitant]
     Indication: SCHIZOPHRENIA
     Route: 048

REACTIONS (1)
  - MYOCARDIAL INFARCTION [None]
